FAERS Safety Report 18318662 (Version 1)
Quarter: 2020Q3

REPORT INFORMATION
  Report Type: Spontaneous
  Country: US (occurrence: US)
  Receive Date: 20200927
  Receipt Date: 20200927
  Transmission Date: 20201103
  Serious: Yes (Life-Threatening, Hospitalization)
  Sender: FDA-Public Use
  Company Number: None

PATIENT
  Age: 70 Year
  Sex: Female
  Weight: 58.5 kg

DRUGS (8)
  1. STIMATE [Suspect]
     Active Substance: DESMOPRESSIN ACETATE
     Indication: VON WILLEBRAND^S DISEASE
     Dosage: ?          QUANTITY:1 SPRAY(S);OTHER FREQUENCY:1 SPRAY/NOSTRIL?1X;OTHER ROUTE:NASAL SPRAY?
     Route: 045
     Dates: start: 20191125, end: 20191125
  2. DIGOXIN. [Concomitant]
     Active Substance: DIGOXIN
  3. PROGESTERONE. [Concomitant]
     Active Substance: PROGESTERONE
  4. CALCIUM/MAGNESIUM W VIT D [Concomitant]
  5. GLUCOSAMINE [Concomitant]
     Active Substance: GLUCOSAMINE
  6. ESTRADIOL. [Concomitant]
     Active Substance: ESTRADIOL
  7. XOPENEX HFA [Concomitant]
     Active Substance: LEVALBUTEROL TARTRATE
  8. MAGNESIUM CITRATE. [Concomitant]
     Active Substance: MAGNESIUM CITRATE

REACTIONS (9)
  - Hyponatraemia [None]
  - Dysuria [None]
  - Product quality issue [None]
  - Abdominal pain upper [None]
  - Fluid retention [None]
  - Nausea [None]
  - Recalled product [None]
  - Swelling face [None]
  - Peripheral swelling [None]

NARRATIVE: CASE EVENT DATE: 20191125
